FAERS Safety Report 5664088-2 (Version None)
Quarter: 2008Q1

REPORT INFORMATION
  Report Type: 
  Country: None (occurrence: None)
  Receive Date: 20080312
  Receipt Date: 20080228
  Transmission Date: 20080703
  Serious: Yes (Life-Threatening, Hospitalization)
  Sender: FDA-Public Use
  Company Number: 2008EN000026

PATIENT
  Age: 27 Month
  Sex: Female
  Weight: 14.2 kg

DRUGS (6)
  1. ONCASPAR [Suspect]
     Indication: ACUTE LYMPHOCYTIC LEUKAEMIA
     Dosage: 1375 IU; X1; IM
     Route: 030
     Dates: start: 20080203, end: 20080203
  2. CEFTAZIDIME SODIUM [Concomitant]
  3. PREDNISONE TAB [Concomitant]
  4. PEPCID [Concomitant]
  5. DIFLUCAN [Concomitant]
  6. BACTRIM [Concomitant]

REACTIONS (5)
  - ANTITHROMBIN III DECREASED [None]
  - CEREBRAL ARTERY OCCLUSION [None]
  - CEREBRAL ISCHAEMIA [None]
  - CEREBROVASCULAR ACCIDENT [None]
  - PROTEIN S DECREASED [None]
